FAERS Safety Report 22601721 (Version 1)
Quarter: 2023Q2

REPORT INFORMATION
  Report Type: Spontaneous
  Country: FR (occurrence: None)
  Receive Date: 20230614
  Receipt Date: 20230614
  Transmission Date: 20230721
  Serious: Yes (Hospitalization, Other)
  Sender: FDA-Public Use
  Company Number: 2023A126405

PATIENT
  Age: 74 Year
  Sex: Female

DRUGS (17)
  1. ESOMEPRAZOLE [Suspect]
     Active Substance: ESOMEPRAZOLE
     Indication: Product used for unknown indication
     Dosage: UNK
     Dates: start: 20120402
  2. ECONAZOLE [Suspect]
     Active Substance: ECONAZOLE
     Indication: Product used for unknown indication
     Dosage: UNK
     Dates: start: 20120403, end: 20120425
  3. CIPROFLOXACIN [Suspect]
     Active Substance: CIPROFLOXACIN
     Indication: Product used for unknown indication
     Dosage: 1 DF, BID
     Route: 048
     Dates: start: 20120402, end: 20120425
  4. ACENOCOUMAROL [Suspect]
     Active Substance: ACENOCOUMAROL
     Indication: Arrhythmia
     Dosage: UNK
     Route: 048
     Dates: start: 20120403, end: 20120425
  5. ACENOCOUMAROL [Suspect]
     Active Substance: ACENOCOUMAROL
     Indication: Atrial fibrillation
     Dosage: UNK
     Route: 048
     Dates: start: 20120403, end: 20120425
  6. AMIKACIN SULFATE [Suspect]
     Active Substance: AMIKACIN SULFATE
     Indication: Pyrexia
     Dosage: UNK, ONCE/SINGLE
     Dates: start: 20120422
  7. AMIKACIN SULFATE [Suspect]
     Active Substance: AMIKACIN SULFATE
     Indication: Mediastinitis
     Dosage: UNK, ONCE/SINGLE
     Dates: start: 20120422
  8. AMIKACIN SULFATE [Suspect]
     Active Substance: AMIKACIN SULFATE
     Indication: Pyrexia
     Dosage: UNK, NCE/SINGLE
     Dates: start: 20120329
  9. AMIKACIN SULFATE [Suspect]
     Active Substance: AMIKACIN SULFATE
     Indication: Mediastinitis
     Dosage: UNK, NCE/SINGLE
     Dates: start: 20120329
  10. AMOXICILLIN [Suspect]
     Active Substance: AMOXICILLIN
     Indication: Product used for unknown indication
     Dosage: UNK
     Dates: start: 20120402, end: 20120422
  11. PIPERACILLIN SODIUM\TAZOBACTAM SODIUM [Suspect]
     Active Substance: PIPERACILLIN SODIUM\TAZOBACTAM SODIUM
     Indication: Product used for unknown indication
     Dosage: UNK
     Dates: start: 20120329, end: 20120402
  12. BACTRIM [Concomitant]
     Active Substance: SULFAMETHOXAZOLE\TRIMETHOPRIM
     Indication: Toxic skin eruption
     Dosage: UNK
     Dates: start: 20120422
  13. FUROSEMIDE [Concomitant]
     Active Substance: FUROSEMIDE
     Indication: Product used for unknown indication
     Dosage: UNK
     Dates: start: 20120408
  14. CORDARONE [Concomitant]
     Active Substance: AMIODARONE HYDROCHLORIDE
     Indication: Atrial fibrillation
     Dosage: UNK, ONCE/SINGLE
     Dates: start: 20120326
  15. CORDARONE [Concomitant]
     Active Substance: AMIODARONE HYDROCHLORIDE
     Indication: Arrhythmia
     Dosage: UNK, ONCE/SINGLE
     Dates: start: 20120326
  16. CORDARONE [Concomitant]
     Active Substance: AMIODARONE HYDROCHLORIDE
     Indication: Atrial fibrillation
     Dosage: UNK, ONCE/SINGLE
     Dates: start: 20120408
  17. CORDARONE [Concomitant]
     Active Substance: AMIODARONE HYDROCHLORIDE
     Indication: Arrhythmia
     Dosage: UNK, ONCE/SINGLE
     Dates: start: 20120408

REACTIONS (15)
  - Skin exfoliation [Unknown]
  - Angular cheilitis [Unknown]
  - Rash pustular [Unknown]
  - Pruritus [Unknown]
  - Arrhythmia [Recovered/Resolved]
  - Rash macular [Unknown]
  - Rash [Recovered/Resolved]
  - Acute generalised exanthematous pustulosis [Recovered/Resolved]
  - International normalised ratio increased [Unknown]
  - Staphylococcal infection [Unknown]
  - Pyrexia [Unknown]
  - Blood creatine increased [Unknown]
  - Oedema peripheral [Unknown]
  - Haemoglobin decreased [Unknown]
  - Candida infection [Unknown]
